FAERS Safety Report 11112954 (Version 1)
Quarter: 2015Q2

REPORT INFORMATION
  Report Type: Spontaneous
  Country: CA (occurrence: CA)
  Receive Date: 20150514
  Receipt Date: 20150514
  Transmission Date: 20150821
  Serious: Yes (Hospitalization)
  Sender: FDA-Public Use
  Company Number: CA-TEVA-562641USA

PATIENT
  Age: 28 Year
  Sex: Male

DRUGS (3)
  1. DONEPEZIL [Suspect]
     Active Substance: DONEPEZIL
     Indication: DRUG ABUSE
     Dosage: 10MG; INCREASED TO 15MG
     Route: 065
  2. DONEPEZIL [Suspect]
     Active Substance: DONEPEZIL
     Indication: DRUG ABUSE
     Dosage: 15MG
     Route: 065
  3. DONEPEZIL [Suspect]
     Active Substance: DONEPEZIL
     Indication: DRUG ABUSE
     Dosage: 5MG FOR 2W; INCREASED TO 10MG
     Route: 065

REACTIONS (3)
  - Drug abuse [Recovering/Resolving]
  - Diarrhoea [Unknown]
  - Mania [Recovering/Resolving]
